FAERS Safety Report 24095984 (Version 1)
Quarter: 2024Q3

REPORT INFORMATION
  Report Type: Spontaneous
  Country: US (occurrence: None)
  Receive Date: 20240715
  Receipt Date: 20240715
  Transmission Date: 20241016
  Serious: Yes (Hospitalization)
  Sender: Public
  Company Number: None

PATIENT
  Age: 54 Year
  Sex: Female

DRUGS (1)
  1. STELARA [Suspect]
     Active Substance: USTEKINUMAB
     Dosage: OTHER FREQUENCY : Q8W;?

REACTIONS (4)
  - Cough [None]
  - Near death experience [None]
  - White blood cell count increased [None]
  - Dyspnoea [None]

NARRATIVE: CASE EVENT DATE: 20240712
